FAERS Safety Report 6964406-9 (Version None)
Quarter: 2010Q3

REPORT INFORMATION
  Report Type: 
  Country: None (occurrence: None)
  Receive Date: 20100903
  Receipt Date: 20100825
  Transmission Date: 20110219
  Serious: Yes (Hospitalization)
  Sender: FDA-Public Use
  Company Number: IT-PFIZER INC-2010106867

PATIENT
  Age: 37 Year
  Sex: Female

DRUGS (4)
  1. ZITROMAX [Suspect]
     Indication: ACUTE TONSILLITIS
     Dosage: UNK
     Dates: start: 20100719, end: 20100723
  2. SUPRAX ^WYETH-AYERST^ [Suspect]
     Indication: ACUTE TONSILLITIS
     Dosage: UNK
     Dates: start: 20100719, end: 20100723
  3. BRUFEN ^ABBOTT^ [Suspect]
     Indication: ACUTE TONSILLITIS
     Dosage: UNK
     Dates: start: 20100719, end: 20100723
  4. AMOXICILLIN [Concomitant]
     Indication: ACUTE TONSILLITIS
     Dosage: UNK
     Dates: start: 20100716, end: 20100718

REACTIONS (1)
  - HENOCH-SCHONLEIN PURPURA [None]
